FAERS Safety Report 25215661 (Version 1)
Quarter: 2025Q2

REPORT INFORMATION
  Report Type: Spontaneous
  Country: US (occurrence: US)
  Receive Date: 20250418
  Receipt Date: 20250418
  Transmission Date: 20250717
  Serious: Yes (Other)
  Sender: JAZZ
  Company Number: US-JAZZ PHARMACEUTICALS-2025-US-009304

PATIENT
  Sex: Female

DRUGS (2)
  1. ZIIHERA [Suspect]
     Active Substance: ZANIDATAMAB-HRII
     Indication: Product used for unknown indication
  2. ASPIRIN [Concomitant]
     Active Substance: ASPIRIN
     Indication: Product used for unknown indication

REACTIONS (1)
  - Retinal haemorrhage [Unknown]

NARRATIVE: CASE EVENT DATE: 20250301
